FAERS Safety Report 4601112-X (Version None)
Quarter: 2005Q1

REPORT INFORMATION
  Report Type: 
  Country: None (occurrence: None)
  Receive Date: 20050204
  Receipt Date: 20041116
  Transmission Date: 20050727
  Serious: Yes (Other)
  Sender: FDA-Public Use
  Company Number: US-2004-033963

PATIENT
  Age: 23 Year
  Sex: Female
  Weight: 78.9 kg

DRUGS (1)
  1. MIRENA [Suspect]
     Indication: CONTRACEPTION
     Dosage: 20 UG/DAY, CONT, INTRA-UTERINE
     Route: 015
     Dates: start: 20031208, end: 20041018

REACTIONS (3)
  - BACK PAIN [None]
  - IUCD COMPLICATION [None]
  - OVARIAN CYST [None]
